FAERS Safety Report 13544420 (Version 1)
Quarter: 2017Q2

REPORT INFORMATION
  Report Type: Spontaneous
  Country: US (occurrence: US)
  Receive Date: 20170515
  Receipt Date: 20170515
  Transmission Date: 20170830
  Serious: Yes (Other)
  Sender: FDA-Public Use
  Company Number: US-ACCORD-051310

PATIENT
  Age: 12 Year
  Sex: Male

DRUGS (4)
  1. MYCOPHENOLIC ACID. [Suspect]
     Active Substance: MYCOPHENOLIC ACID
     Indication: IMMUNOSUPPRESSION
  2. PREDNISONE. [Concomitant]
     Active Substance: PREDNISONE
     Indication: IMMUNOSUPPRESSION
  3. TACROLIMUS. [Suspect]
     Active Substance: TACROLIMUS
     Indication: IMMUNOSUPPRESSION
  4. LEFLUNOMIDE. [Concomitant]
     Active Substance: LEFLUNOMIDE
     Indication: IMMUNOSUPPRESSION

REACTIONS (6)
  - BK virus infection [Recovered/Resolved]
  - Renal tubular atrophy [Unknown]
  - Chronic allograft nephropathy [Unknown]
  - Tubulointerstitial nephritis [Unknown]
  - Epstein-Barr viraemia [Recovering/Resolving]
  - Renal arteriosclerosis [Unknown]
